FAERS Safety Report 8002539-9 (Version None)
Quarter: 2011Q4

REPORT INFORMATION
  Report Type: 
  Country: None (occurrence: None)
  Receive Date: 20111219
  Receipt Date: 20111206
  Transmission Date: 20120403
  Serious: Yes (Hospitalization)
  Sender: FDA-Public Use
  Company Number: KAD201112-000107

PATIENT
  Sex: Female

DRUGS (1)
  1. RIBAVIRIN [Suspect]

REACTIONS (1)
  - SYNCOPE [None]
